FAERS Safety Report 5998398-6 (Version None)
Quarter: 2008Q4

REPORT INFORMATION
  Report Type: 
  Country: None (occurrence: None)
  Receive Date: 20081213
  Receipt Date: 20080703
  Transmission Date: 20090506
  Serious: No
  Sender: FDA-Public Use
  Company Number: US-AMGEN-KDL278913

PATIENT
  Sex: Male
  Weight: 76.7 kg

DRUGS (8)
  1. ENBREL [Suspect]
     Indication: RHEUMATOID ARTHRITIS
     Route: 058
     Dates: start: 20071231
  2. PLAQUENIL [Concomitant]
     Route: 048
  3. METHOTREXATE [Concomitant]
     Route: 048
  4. PREDNISONE TAB [Concomitant]
  5. NAPROXEN [Concomitant]
  6. ACTONEL [Concomitant]
     Route: 048
  7. ULTRAM [Concomitant]
  8. OS-CAL + D [Concomitant]

REACTIONS (3)
  - BURNING SENSATION [None]
  - OSTEOARTHRITIS [None]
  - OSTEOPENIA [None]
